FAERS Safety Report 23860378 (Version 1)
Quarter: 2024Q2

REPORT INFORMATION
  Report Type: Spontaneous
  Country: GB (occurrence: GB)
  Receive Date: 20240515
  Receipt Date: 20240515
  Transmission Date: 20240715
  Serious: Yes (Death, Hospitalization)
  Sender: FDA-Public Use
  Company Number: GB-PFIZER INC-202400099141

PATIENT
  Age: 69 Year
  Sex: Female
  Weight: 59 kg

DRUGS (1)
  1. ELREXFIO [Suspect]
     Active Substance: ELRANATAMAB-BCMM
     Indication: Plasma cell myeloma
     Dosage: 76 MG 2 LOADING DOSES AND 3 FULL DOSES
     Route: 058
     Dates: start: 20240322, end: 20240412

REACTIONS (2)
  - Neoplasm progression [Fatal]
  - Cellulitis [Unknown]

NARRATIVE: CASE EVENT DATE: 20240415
